FAERS Safety Report 7570768-4 (Version None)
Quarter: 2011Q2

REPORT INFORMATION
  Report Type: 
  Country: None (occurrence: None)
  Receive Date: 20110624
  Receipt Date: 20110610
  Transmission Date: 20111010
  Serious: Yes (Other)
  Sender: FDA-Public Use
  Company Number: AU-ELI_LILLY_AND_COMPANY-AU201106002723

PATIENT
  Sex: Female

DRUGS (1)
  1. FORTEO [Suspect]
     Indication: OSTEOPOROSIS
     Dosage: 20 UG, DAILY (1/D)
     Dates: start: 20110324

REACTIONS (6)
  - PAIN IN EXTREMITY [None]
  - SKIN CANCER [None]
  - IMMUNE SYSTEM DISORDER [None]
  - INFECTED SKIN ULCER [None]
  - POOR PERIPHERAL CIRCULATION [None]
  - SKIN ULCER [None]
